FAERS Safety Report 25386398 (Version 1)
Quarter: 2025Q2

REPORT INFORMATION
  Report Type: Spontaneous
  Country: IT (occurrence: IT)
  Receive Date: 20250602
  Receipt Date: 20250602
  Transmission Date: 20250716
  Serious: Yes (Other)
  Sender: UCB
  Company Number: IT-UCBSA-2025031178

PATIENT
  Age: 0 Year
  Sex: Female
  Weight: 3.6 kg

DRUGS (6)
  1. VIMPAT [Suspect]
     Active Substance: LACOSAMIDE
     Indication: Partial seizures
     Dosage: 150 MILLIGRAM, 2X/DAY (BID) (1.5 TABLETS BID)
     Route: 064
     Dates: start: 201106, end: 201112
  2. VIMPAT [Suspect]
     Active Substance: LACOSAMIDE
     Indication: Epilepsy
     Route: 064
     Dates: start: 201112, end: 201202
  3. VIMPAT [Suspect]
     Active Substance: LACOSAMIDE
     Route: 064
     Dates: start: 201202
  4. VIMPAT [Suspect]
     Active Substance: LACOSAMIDE
     Dosage: 150 MILLIGRAM, MORNING
     Route: 064
     Dates: start: 20120901
  5. VIMPAT [Suspect]
     Active Substance: LACOSAMIDE
     Route: 064
     Dates: start: 202302
  6. FOLIC ACID [Concomitant]
     Active Substance: FOLIC ACID
     Indication: Product used for unknown indication
     Dosage: 800 MICROGRAM, ONCE DAILY (QD)
     Route: 064
     Dates: start: 202403

REACTIONS (8)
  - Hydronephrosis [Unknown]
  - Small for dates baby [Unknown]
  - Low birth weight baby [Unknown]
  - Irritability [Unknown]
  - Gastrooesophageal reflux disease [Unknown]
  - Exposure via breast milk [Unknown]
  - Maternal exposure during pregnancy [Unknown]
  - Maternal exposure before pregnancy [Unknown]

NARRATIVE: CASE EVENT DATE: 20240701
